FAERS Safety Report 8210920-8 (Version None)
Quarter: 2012Q1

REPORT INFORMATION
  Report Type: 
  Country: None (occurrence: None)
  Receive Date: 20120315
  Receipt Date: 20120306
  Transmission Date: 20120608
  Serious: Yes (Hospitalization)
  Sender: FDA-Public Use
  Company Number: US-BAYER-2012-023028

PATIENT
  Age: 33 Year
  Sex: Female
  Weight: 62.132 kg

DRUGS (13)
  1. YAZ [Suspect]
     Indication: CONTRACEPTION
     Dosage: UNK
     Route: 048
  2. CLINDAMYCIN [Concomitant]
     Dosage: UNK
     Route: 061
     Dates: start: 20100928
  3. SINGULAIR [Concomitant]
     Dosage: 10 MG, UNK
  4. YAZ [Suspect]
     Indication: ENDOMETRIOSIS
  5. UNKNOWN [Concomitant]
  6. DILAUDID [Concomitant]
     Indication: PAIN MANAGEMENT
     Route: 048
  7. DROSPIRENONE AND ETHINYL ESTRADIOL [Suspect]
  8. PREDNISONE [Concomitant]
     Dosage: UNK
     Route: 048
     Dates: start: 20101111
  9. AMBIEN [Concomitant]
  10. PHENERGAN [Concomitant]
     Dosage: DAILY DOSE 12.5 MG
     Route: 054
     Dates: start: 20101116
  11. YASMIN [Suspect]
     Dosage: UNK
     Route: 048
  12. FENTANYL [Concomitant]
     Indication: PAIN MANAGEMENT
     Route: 062
  13. ATIVAN [Concomitant]

REACTIONS (2)
  - CEREBRAL VENOUS THROMBOSIS [None]
  - JUGULAR VEIN THROMBOSIS [None]
